FAERS Safety Report 4986517-X (Version None)
Quarter: 2006Q2

REPORT INFORMATION
  Report Type: 
  Country: None (occurrence: None)
  Receive Date: 20060428
  Receipt Date: 20060419
  Transmission Date: 20061013
  Serious: Yes (Other)
  Sender: FDA-Public Use
  Company Number: US-ROCHE-445231

PATIENT
  Age: 23 Year
  Sex: Female

DRUGS (2)
  1. ACCUTANE [Suspect]
     Indication: ACNE
     Dosage: THE ACCUTANE PRESCRIPTION CONTAINED THE YELLOW STICKER.
     Route: 065
     Dates: start: 20050503, end: 20050818
  2. ORAL CONTRACEPTIVE PILL [Concomitant]
     Route: 048
     Dates: end: 20050815

REACTIONS (3)
  - DRUG EXPOSURE DURING PREGNANCY [None]
  - NO ADVERSE EFFECT [None]
  - PREGNANCY [None]
